FAERS Safety Report 9822376 (Version 2)
Quarter: 2014Q1

REPORT INFORMATION
  Report Type: Spontaneous
  Country: DE (occurrence: DE)
  Receive Date: 20140116
  Receipt Date: 20140129
  Transmission Date: 20141002
  Serious: Yes (Other)
  Sender: FDA-Public Use
  Company Number: DE-B.I. PHARMACEUTICALS,INC./RIDGEFIELD-2014-BI-01711DE

PATIENT
  Sex: Female
  Weight: 49 kg

DRUGS (8)
  1. SPIRIVA [Suspect]
     Indication: EMPHYSEMA
     Dosage: 18 MCG
     Route: 055
     Dates: start: 2010
  2. SPIRIVA [Suspect]
     Indication: CHRONIC OBSTRUCTIVE PULMONARY DISEASE
  3. SYMBICORT [Suspect]
     Indication: EMPHYSEMA
     Route: 055
     Dates: start: 2010
  4. SYMBICORT [Suspect]
     Indication: CHRONIC OBSTRUCTIVE PULMONARY DISEASE
  5. L-THYROXIN [Suspect]
     Indication: ILL-DEFINED DISORDER
     Dosage: 100 MG
     Dates: start: 2008
  6. METODURA ZNT [Concomitant]
     Indication: ARRHYTHMIA
     Dosage: 50 MG
     Dates: start: 2008
  7. SALBUTAMOL [Concomitant]
     Indication: EMPHYSEMA
     Route: 055
     Dates: start: 2010
  8. SALBUTAMOL [Concomitant]
     Indication: CHRONIC OBSTRUCTIVE PULMONARY DISEASE

REACTIONS (6)
  - Benign renal neoplasm [Unknown]
  - Haemorrhage [Unknown]
  - Skin disorder [Not Recovered/Not Resolved]
  - Abnormal loss of weight [Not Recovered/Not Resolved]
  - Pneumonia [Unknown]
  - Chronic obstructive pulmonary disease [Unknown]
